FAERS Safety Report 5515157-9 (Version None)
Quarter: 2007Q4

REPORT INFORMATION
  Report Type: 
  Country: None (occurrence: None)
  Receive Date: 20071113
  Receipt Date: 20070123
  Transmission Date: 20080405
  Serious: No
  Sender: FDA-Public Use
  Company Number: A0636702A

PATIENT
  Age: 84 Year
  Sex: Female

DRUGS (4)
  1. COREG [Suspect]
     Indication: HYPERTENSION
     Dosage: 25MG PER DAY
     Route: 048
     Dates: start: 20040501
  2. DIOVAN [Concomitant]
  3. TIAZAC [Concomitant]
  4. ASPIRIN [Concomitant]

REACTIONS (1)
  - ALOPECIA [None]
